FAERS Safety Report 8841302 (Version 1)
Quarter: 2012Q4

REPORT INFORMATION
  Report Type: 
  Country: US (occurrence: US)
  Receive Date: 20121015
  Receipt Date: 20121015
  Transmission Date: 20130627
  Serious: No
  Sender: FDA-Public Use
  Company Number: US-ASTRAZENECA-2012SE77250

PATIENT
  Sex: Female
  Weight: 49.9 kg

DRUGS (1)
  1. ZOMIG [Suspect]
     Indication: MIGRAINE
     Route: 048

REACTIONS (8)
  - Migraine [Unknown]
  - Pain [Unknown]
  - Migraine with aura [Unknown]
  - Vision blurred [Unknown]
  - Nausea [Unknown]
  - Circumstance or information capable of leading to medication error [Unknown]
  - Intentional drug misuse [Unknown]
  - Drug dose omission [Unknown]
